FAERS Safety Report 18131188 (Version 1)
Quarter: 2020Q3

REPORT INFORMATION
  Report Type: Spontaneous
  Country: US (occurrence: US)
  Receive Date: 20200810
  Receipt Date: 20200810
  Transmission Date: 20201103
  Serious: Yes (Hospitalization, Other)
  Sender: FDA-Public Use
  Company Number: US-PURDUE-USA-2020-0160546

PATIENT
  Age: 62 Year
  Sex: Male

DRUGS (27)
  1. OXYCODONE HCL TABLETS (RHODES 91?490) [Suspect]
     Active Substance: OXYCODONE HYDROCHLORIDE
     Indication: ANALGESIC THERAPY
     Dosage: 10 MG, Q4H PRN
     Route: 048
  2. DILAUDID [Suspect]
     Active Substance: HYDROMORPHONE HYDROCHLORIDE
     Indication: ANALGESIC THERAPY
     Dosage: 4 MG, Q4H PRN
     Route: 048
  3. NAPROSYN [Concomitant]
     Active Substance: NAPROXEN
     Indication: PRODUCT USED FOR UNKNOWN INDICATION
     Dosage: 500 MG, BID
     Route: 048
  4. NORVASC [Concomitant]
     Active Substance: AMLODIPINE BESYLATE
     Indication: PRODUCT USED FOR UNKNOWN INDICATION
     Dosage: UNKNOWN
     Route: 065
     Dates: start: 20130624
  5. OXYCODONE HCL TABLETS (RHODES 91?490) [Suspect]
     Active Substance: OXYCODONE HYDROCHLORIDE
     Indication: BREAKTHROUGH PAIN
  6. ULTRAM [Suspect]
     Active Substance: TRAMADOL HYDROCHLORIDE
     Indication: ANALGESIC THERAPY
     Dosage: 50 MG, Q8H PRN
     Route: 048
  7. NICORETTE [Concomitant]
     Active Substance: NICOTINE
     Indication: PRODUCT USED FOR UNKNOWN INDICATION
     Dosage: 4 MG, AS DIRECTED
     Route: 048
  8. METHOTREXATE. [Concomitant]
     Active Substance: METHOTREXATE
     Indication: RHEUMATOID ARTHRITIS
     Dosage: UNKNOWN
     Route: 065
  9. OXYCONTIN [Suspect]
     Active Substance: OXYCODONE HYDROCHLORIDE
     Indication: ANALGESIC THERAPY
     Dosage: 80 MG, TID
     Route: 048
  10. OXYCONTIN [Suspect]
     Active Substance: OXYCODONE HYDROCHLORIDE
     Indication: BACK PAIN
     Dosage: 40 MG, BID
     Route: 048
     Dates: start: 20130619
  11. ATIVAN [Suspect]
     Active Substance: LORAZEPAM
     Indication: ANXIETY
     Dosage: 0.5 MG, HS
     Route: 048
  12. IBUPROFEN. [Suspect]
     Active Substance: IBUPROFEN
     Indication: PRODUCT USED FOR UNKNOWN INDICATION
     Dosage: UNKNOWN
     Route: 065
  13. NUVIGIL [Concomitant]
     Active Substance: ARMODAFINIL
     Indication: PRODUCT USED FOR UNKNOWN INDICATION
     Dosage: 150 MG, AM
     Route: 048
  14. LOTREL [Concomitant]
     Active Substance: AMLODIPINE BESYLATE\BENAZEPRIL HYDROCHLORIDE
     Indication: PRODUCT USED FOR UNKNOWN INDICATION
     Dosage: 1 CAPSL, DAILY
     Route: 048
  15. HYDROCHLOROTHIAZIDE. [Concomitant]
     Active Substance: HYDROCHLOROTHIAZIDE
     Indication: PRODUCT USED FOR UNKNOWN INDICATION
     Dosage: 25 MG, DAILY
     Route: 048
  16. OXYCONTIN [Suspect]
     Active Substance: OXYCODONE HYDROCHLORIDE
     Indication: PAIN
     Dosage: 80 MG, Q8? 12H
     Route: 048
  17. PERCOCET                           /00446701/ [Suspect]
     Active Substance: ACETAMINOPHEN\OXYCODONE HYDROCHLORIDE\OXYCODONE TEREPHTHALATE
     Indication: BACK PAIN
  18. NEURONTIN [Concomitant]
     Active Substance: GABAPENTIN
     Indication: PRODUCT USED FOR UNKNOWN INDICATION
     Dosage: 3000 MG, DAILY
     Route: 048
  19. PERCOCET                           /00446701/ [Suspect]
     Active Substance: ACETAMINOPHEN\OXYCODONE HYDROCHLORIDE\OXYCODONE TEREPHTHALATE
     Indication: ANALGESIC THERAPY
     Dosage: 335 MG, Q8H PRN
     Route: 048
  20. EFFEXOR XR [Concomitant]
     Active Substance: VENLAFAXINE HYDROCHLORIDE
     Indication: PRODUCT USED FOR UNKNOWN INDICATION
     Dosage: 150 MG, DAILY
     Route: 048
  21. LIDOCAINE VISCOUS [Concomitant]
     Active Substance: LIDOCAINE HYDROCHLORIDE
     Indication: PRODUCT USED FOR UNKNOWN INDICATION
     Dosage: 15 ML, Q3H
     Route: 048
  22. MIRAPEX [Concomitant]
     Active Substance: PRAMIPEXOLE DIHYDROCHLORIDE
     Indication: PRODUCT USED FOR UNKNOWN INDICATION
     Dosage: 0.75 MG, HS
     Route: 048
  23. LISINOPRIL. [Concomitant]
     Active Substance: LISINOPRIL
     Indication: PRODUCT USED FOR UNKNOWN INDICATION
     Dosage: UNKNOWN
     Route: 065
  24. CARAFATE [Concomitant]
     Active Substance: SUCRALFATE
     Indication: PRODUCT USED FOR UNKNOWN INDICATION
     Dosage: PRN1 TSP, AC
     Route: 048
  25. ATIVAN [Suspect]
     Active Substance: LORAZEPAM
     Indication: MUSCLE SPASMS
     Dosage: 1 MG, Q6H
     Route: 048
  26. AMBIEN [Concomitant]
     Active Substance: ZOLPIDEM TARTRATE
     Indication: PRODUCT USED FOR UNKNOWN INDICATION
     Dosage: 5 MG, HS PRN
     Route: 048
  27. PREDNISONE. [Concomitant]
     Active Substance: PREDNISONE
     Indication: RHEUMATOID ARTHRITIS
     Dosage: 60 MG, DAILY
     Route: 048

REACTIONS (32)
  - Craniocerebral injury [Unknown]
  - Subdural haematoma [Unknown]
  - Dehydration [Unknown]
  - Drug abuse [Unknown]
  - Rib fracture [Unknown]
  - Hypoxia [Recovered/Resolved]
  - Loss of consciousness [Unknown]
  - Left ventricular failure [Unknown]
  - Dizziness [Unknown]
  - Lethargy [Unknown]
  - Chronic idiopathic pain syndrome [Unknown]
  - Chest injury [Unknown]
  - Insomnia [Unknown]
  - Hypersomnia [Unknown]
  - Pneumothorax [Unknown]
  - Oxygen therapy [Unknown]
  - Renal tubular necrosis [Unknown]
  - Unevaluable event [Not Recovered/Not Resolved]
  - Hypertension [Unknown]
  - Surgical fixation of rib fracture [Unknown]
  - Acute kidney injury [Unknown]
  - Dyspnoea [Unknown]
  - Incoherent [Unknown]
  - Depression [Unknown]
  - Drug dependence [Unknown]
  - Road traffic accident [Unknown]
  - Clavicle fracture [Unknown]
  - Confusional state [Unknown]
  - Fracture displacement [Unknown]
  - Mental status changes [Unknown]
  - Cardiac disorder [Unknown]
  - Somnolence [Unknown]

NARRATIVE: CASE EVENT DATE: 20110810
